FAERS Safety Report 8397997-4 (Version None)
Quarter: 2012Q2

REPORT INFORMATION
  Report Type: 
  Country: None (occurrence: None)
  Receive Date: 20120531
  Receipt Date: 20110415
  Transmission Date: 20120825
  Serious: No
  Sender: FDA-Public Use
  Company Number: US-NOVEN-11US002318

PATIENT
  Sex: Female

DRUGS (1)
  1. DAYTRANA [Suspect]
     Indication: ATTENTION DEFICIT/HYPERACTIVITY DISORDER
     Dosage: 15 MG, QD X 9 HRS
     Route: 062
     Dates: start: 20080101, end: 20080101

REACTIONS (3)
  - HYPERSENSITIVITY [None]
  - APPLICATION SITE SWELLING [None]
  - APPLICATION SITE PAPULES [None]
